FAERS Safety Report 7559092-3 (Version None)
Quarter: 2011Q2

REPORT INFORMATION
  Report Type: 
  Country: None (occurrence: None)
  Receive Date: 20110621
  Receipt Date: 20110616
  Transmission Date: 20111010
  Serious: Yes (Hospitalization)
  Sender: FDA-Public Use
  Company Number: US-JNJFOC-20110512545

PATIENT
  Age: 70 Year
  Sex: Female

DRUGS (1)
  1. NUCYNTA [Suspect]
     Indication: PRODUCT USED FOR UNKNOWN INDICATION
     Route: 048
     Dates: start: 20110501, end: 20110526

REACTIONS (4)
  - TRANSIENT ISCHAEMIC ATTACK [None]
  - DEHYDRATION [None]
  - EATING DISORDER [None]
  - CONFUSIONAL STATE [None]
